FAERS Safety Report 8448859-5 (Version None)
Quarter: 2012Q2

REPORT INFORMATION
  Report Type: 
  Country: None (occurrence: None)
  Receive Date: 20120619
  Receipt Date: 20120611
  Transmission Date: 20120825
  Serious: Yes (Other)
  Sender: FDA-Public Use
  Company Number: US-US-EMD SERONO, INC.-7136969

PATIENT
  Sex: Male
  Weight: 101 kg

DRUGS (6)
  1. REBIF [Suspect]
     Indication: MULTIPLE SCLEROSIS
     Route: 058
     Dates: start: 20110422
  2. PROVIGIL [Concomitant]
     Route: 048
     Dates: start: 20110328
  3. PROVIGIL [Concomitant]
     Route: 048
     Dates: start: 20111116
  4. PRINIVIL [Concomitant]
     Route: 048
  5. MULTIPLE VITAMIN [Concomitant]
  6. VITAMIN D [Concomitant]
     Route: 048

REACTIONS (4)
  - URINARY INCONTINENCE [None]
  - LOSS OF CONSCIOUSNESS [None]
  - INJECTION SITE ERYTHEMA [None]
  - HEAD INJURY [None]
